FAERS Safety Report 23457158 (Version 2)
Quarter: 2024Q1

REPORT INFORMATION
  Report Type: Spontaneous
  Country: JP (occurrence: JP)
  Receive Date: 20240130
  Receipt Date: 20240301
  Transmission Date: 20240409
  Serious: No
  Sender: FDA-Public Use
  Company Number: JP-UCBJ-CD202400511UCBPHAPROD

PATIENT
  Age: 3 Year
  Sex: Female

DRUGS (2)
  1. VIMPAT [Suspect]
     Active Substance: LACOSAMIDE
     Indication: Muscle twitching
     Dosage: 40 MILLIGRAM, 2X/DAY (BID)
     Route: 048
  2. VALPROATE SODIUM [Concomitant]
     Active Substance: VALPROATE SODIUM
     Indication: Muscle twitching
     Dosage: UNK
     Route: 048

REACTIONS (3)
  - Atrioventricular block first degree [Not Recovered/Not Resolved]
  - Atrioventricular block second degree [Unknown]
  - Off label use [Unknown]
